FAERS Safety Report 7416131-8 (Version None)
Quarter: 2011Q2

REPORT INFORMATION
  Report Type: 
  Country: None (occurrence: None)
  Receive Date: 20110414
  Receipt Date: 20110409
  Transmission Date: 20111010
  Serious: Yes (Other)
  Sender: FDA-Public Use
  Company Number: BR-MEDIMMUNE-MEDI-0013034

PATIENT
  Sex: Female
  Weight: 6 kg

DRUGS (3)
  1. BROMOPRIDE [Concomitant]
     Route: 048
     Dates: start: 20100417
  2. SYNAGIS [Suspect]
     Route: 030
     Dates: start: 20100722, end: 20100824
  3. SYNAGIS [Suspect]
     Indication: BRONCHOPULMONARY DYSPLASIA

REACTIONS (9)
  - URINARY TRACT INFECTION [None]
  - COUGH [None]
  - BRONCHOPNEUMONIA [None]
  - DYSPNOEA [None]
  - DIABETES MELLITUS [None]
  - MOANING [None]
  - BRONCHITIS [None]
  - INCREASED BRONCHIAL SECRETION [None]
  - FATIGUE [None]
